FAERS Safety Report 19953146 (Version 2)
Quarter: 2021Q4

REPORT INFORMATION
  Report Type: Report from Study
  Country: MX (occurrence: MX)
  Receive Date: 20211013
  Receipt Date: 20211027
  Transmission Date: 20220303
  Serious: Yes (Other)
  Sender: FDA-Public Use
  Company Number: NVSC2021MX234000

PATIENT
  Age: 67 Year
  Sex: Male
  Weight: 78.3 kg

DRUGS (5)
  1. ENTRESTO [Suspect]
     Active Substance: SACUBITRIL\VALSARTAN
     Indication: Cardiac failure
     Route: 048
  2. ENTRESTO [Suspect]
     Active Substance: SACUBITRIL\VALSARTAN
     Dosage: 50 MG, Q12H
     Route: 048
     Dates: start: 201911, end: 202106
  3. ENTRESTO [Suspect]
     Active Substance: SACUBITRIL\VALSARTAN
     Dosage: 100 MG, Q12H
     Route: 048
     Dates: start: 202106
  4. SEMAGLUTIDE [Suspect]
     Active Substance: SEMAGLUTIDE
     Indication: Diabetes mellitus
     Dosage: 0.25 MG
     Route: 058
     Dates: start: 2021, end: 202108
  5. ATORVASTATIN [Concomitant]
     Active Substance: ATORVASTATIN
     Indication: Vein disorder
     Dosage: 1 DF, QD
     Route: 048
     Dates: start: 201911

REACTIONS (7)
  - Diabetes mellitus [Unknown]
  - Abdominal pain upper [Recovered/Resolved]
  - Secretion discharge [Recovered/Resolved]
  - Fall [Unknown]
  - Rib fracture [Recovered/Resolved]
  - Productive cough [Recovered/Resolved]
  - Diarrhoea [Recovered/Resolved]

NARRATIVE: CASE EVENT DATE: 20210801
